FAERS Safety Report 20744662 (Version 1)
Quarter: 2022Q2

REPORT INFORMATION
  Report Type: Spontaneous
  Country: US (occurrence: US)
  Receive Date: 20220425
  Receipt Date: 20220425
  Transmission Date: 20220721
  Serious: No
  Sender: FDA-Public Use
  Company Number: US-PFIZER INC-202101138706

PATIENT
  Age: 27 Year
  Sex: Male
  Weight: 71.21 kg

DRUGS (5)
  1. CHANTIX [Suspect]
     Active Substance: VARENICLINE TARTRATE
     Indication: Smoking cessation therapy
     Dosage: UNK (STARTED WITH .5MG AND WENT UP TO 1MG)
     Dates: start: 20210511
  2. CHANTIX [Suspect]
     Active Substance: VARENICLINE TARTRATE
     Dosage: UNK (REGULAR DOSE 1 IN MORNING AND 1 AT NIGHT )
     Dates: start: 20210305
  3. BENZTROPINE MESYLATE [Concomitant]
     Active Substance: BENZTROPINE MESYLATE
  4. LITHIUM [Concomitant]
     Active Substance: LITHIUM
  5. VRAYLAR [Concomitant]
     Active Substance: CARIPRAZINE

REACTIONS (3)
  - Drug ineffective [Unknown]
  - Sleep terror [Unknown]
  - Recalled product administered [Unknown]

NARRATIVE: CASE EVENT DATE: 20210101
